FAERS Safety Report 8238336-9 (Version None)
Quarter: 2012Q1

REPORT INFORMATION
  Report Type: 
  Country: None (occurrence: None)
  Receive Date: 20120326
  Receipt Date: 20120312
  Transmission Date: 20120608
  Serious: Yes (Other)
  Sender: FDA-Public Use
  Company Number: 7118438

PATIENT
  Age: 70 Year
  Sex: Female

DRUGS (1)
  1. LEVOTHYROXINE SODIUM [Suspect]
     Indication: PRODUCT USED FOR UNKNOWN INDICATION
     Dosage: (6.25 MCG,QUARTER OF 25 MCG)

REACTIONS (3)
  - MALAISE [None]
  - ANXIETY [None]
  - DYSPNOEA [None]
